FAERS Safety Report 19955596 (Version 1)
Quarter: 2021Q4

REPORT INFORMATION
  Report Type: Spontaneous
  Country: US (occurrence: US)
  Receive Date: 20211013
  Receipt Date: 20211013
  Transmission Date: 20220303
  Serious: No
  Sender: FDA-Public Use
  Company Number: US-BLUEPRINT MEDICINES CORPORATION-SP-US-2021-001776

PATIENT
  Age: 78 Year
  Sex: Male

DRUGS (2)
  1. AYVAKIT [Suspect]
     Active Substance: AVAPRITINIB
     Indication: Systemic mastocytosis
     Route: 048
     Dates: start: 20210715
  2. VENCLEXTA [Concomitant]
     Active Substance: VENETOCLAX
     Indication: Systemic mastocytosis
     Route: 065
     Dates: start: 202107

REACTIONS (2)
  - Epistaxis [Unknown]
  - Adverse drug reaction [Unknown]
